FAERS Safety Report 21869495 (Version 1)
Quarter: 2023Q1

REPORT INFORMATION
  Report Type: Spontaneous
  Country: US (occurrence: None)
  Receive Date: 20230117
  Receipt Date: 20230117
  Transmission Date: 20230417
  Serious: No
  Sender: FDA-Public Use
  Company Number: US-SUPERNUS Pharmaceuticals, Inc.-SUP202211-003724

PATIENT
  Age: 38 Year
  Sex: Female
  Weight: 73.48 kg

DRUGS (8)
  1. QELBREE [Suspect]
     Active Substance: VILOXAZINE HYDROCHLORIDE
     Indication: Attention deficit hyperactivity disorder
     Route: 048
     Dates: start: 20221108
  2. FENTANYL [Concomitant]
     Active Substance: FENTANYL
     Dosage: NOT PROVIDED
  3. DILAUDID [Concomitant]
     Active Substance: HYDROMORPHONE HYDROCHLORIDE
     Dosage: NOT PROVIDED
  4. SEROQUEL [Concomitant]
     Active Substance: QUETIAPINE FUMARATE
     Dosage: NOT PROVIDED
  5. KEFLEX [Concomitant]
     Active Substance: CEPHALEXIN
     Dosage: NOT PROVIDED
  6. HYDROXYZINE [Concomitant]
     Active Substance: HYDROXYZINE HYDROCHLORIDE
     Dosage: NOT PROVIDED
  7. COMPAZINE [Concomitant]
     Active Substance: PROCHLORPERAZINE MALEATE
     Dosage: NOT PROVIDED
  8. LASIX [Concomitant]
     Active Substance: FUROSEMIDE
     Dosage: NOT PROVIDED

REACTIONS (3)
  - Altered state of consciousness [Unknown]
  - Catatonia [Unknown]
  - Somnolence [Unknown]

NARRATIVE: CASE EVENT DATE: 20221109
